FAERS Safety Report 17195434 (Version 1)
Quarter: 2019Q4

REPORT INFORMATION
  Report Type: Spontaneous
  Country: SE (occurrence: SE)
  Receive Date: 20191224
  Receipt Date: 20191224
  Transmission Date: 20200122
  Serious: Yes (Hospitalization)
  Sender: FDA-Public Use
  Company Number: SE-TEVA-2019-SE-1156156

PATIENT
  Age: 17 Year
  Sex: Female

DRUGS (2)
  1. ESCITALOPRAM [Suspect]
     Active Substance: ESCITALOPRAM OXALATE
     Dosage: ^MAYBE 140 MG^
     Route: 048
     Dates: start: 20180514, end: 20180514
  2. PROPAVAN [Suspect]
     Active Substance: PROPIOMAZINE
     Dosage: ^SEEMS- TO HAVE TAKEN SOME MAPS PROPAVAN^, ^1300 MG PROPAVAN^
     Route: 048
     Dates: start: 20180514, end: 20180514

REACTIONS (6)
  - Urinary retention [Unknown]
  - Anxiety [Unknown]
  - Intentional self-injury [Unknown]
  - Intentional overdose [Unknown]
  - Depressed level of consciousness [Unknown]
  - Tachycardia [Unknown]

NARRATIVE: CASE EVENT DATE: 20180514
